FAERS Safety Report 8104157-0 (Version None)
Quarter: 2012Q1

REPORT INFORMATION
  Report Type: 
  Country: None (occurrence: None)
  Receive Date: 20120201
  Receipt Date: 20120120
  Transmission Date: 20120608
  Serious: Yes (Other)
  Sender: FDA-Public Use
  Company Number: FR-BRISTOL-MYERS SQUIBB COMPANY-16362642

PATIENT
  Age: 51 Year
  Sex: Male

DRUGS (6)
  1. EMTRIVA [Suspect]
     Indication: HIV INFECTION
     Route: 048
     Dates: start: 20090326
  2. NORVIR [Suspect]
     Indication: HIV INFECTION
     Route: 048
     Dates: start: 20090326, end: 20110503
  3. VIREAD [Suspect]
     Indication: HIV INFECTION
     Route: 048
     Dates: start: 20090326
  4. ZOLEDRONOC ACID [Concomitant]
     Indication: OSTEOPOROSIS
     Route: 042
  5. REYATAZ [Suspect]
     Indication: HIV INFECTION
     Route: 048
     Dates: start: 20091221, end: 20110503
  6. CRESTOR [Concomitant]
     Indication: DYSLIPIDAEMIA
     Dosage: FILM COATED TABS
     Route: 048

REACTIONS (2)
  - RENAL TUBULAR DISORDER [None]
  - CONDITION AGGRAVATED [None]
